FAERS Safety Report 8099237-2 (Version None)
Quarter: 2012Q1

REPORT INFORMATION
  Report Type: 
  Country: None (occurrence: None)
  Receive Date: 20120129
  Receipt Date: 20111005
  Transmission Date: 20120608
  Serious: No
  Sender: FDA-Public Use
  Company Number: US-ABBOTT-11P-163-0861278-00

PATIENT
  Sex: Female
  Weight: 72.64 kg

DRUGS (7)
  1. THYROID TAB [Concomitant]
     Indication: HYPOTHYROIDISM
  2. HUMIRA [Suspect]
     Indication: ANKYLOSING SPONDYLITIS
     Dates: start: 20110909
  3. HUMIRA [Suspect]
     Indication: UVEITIS
  4. PREDNISONE TAB [Concomitant]
     Indication: ANKYLOSING SPONDYLITIS
  5. PREDNISONE TAB [Concomitant]
     Indication: UVEITIS
  6. METHOTREXATE [Concomitant]
     Indication: ANKYLOSING SPONDYLITIS
  7. METHOTREXATE [Concomitant]
     Indication: UVEITIS

REACTIONS (4)
  - OCULAR HYPERAEMIA [None]
  - EYE INFLAMMATION [None]
  - UVEITIS [None]
  - EYE PAIN [None]
